FAERS Safety Report 19769638 (Version 3)
Quarter: 2025Q3

REPORT INFORMATION
  Report Type: Spontaneous
  Country: EU (occurrence: EU)
  Receive Date: 20210831
  Receipt Date: 20250903
  Transmission Date: 20251020
  Serious: Yes (Other)
  Sender: MYLAN
  Company Number: EU-ARISTO PHARMA-LEVOM-LORA-PREG202103081

PATIENT
  Age: 39 Year
  Sex: Male

DRUGS (36)
  1. DIAZEPAM [Interacting]
     Active Substance: DIAZEPAM
     Indication: Product used for unknown indication
  2. DIAZEPAM [Interacting]
     Active Substance: DIAZEPAM
     Route: 065
  3. DIAZEPAM [Interacting]
     Active Substance: DIAZEPAM
     Route: 065
  4. DIAZEPAM [Interacting]
     Active Substance: DIAZEPAM
  5. PREGABALIN [Interacting]
     Active Substance: PREGABALIN
     Indication: Product used for unknown indication
  6. PREGABALIN [Interacting]
     Active Substance: PREGABALIN
     Route: 065
  7. PREGABALIN [Interacting]
     Active Substance: PREGABALIN
     Route: 065
  8. PREGABALIN [Interacting]
     Active Substance: PREGABALIN
  9. LORAZEPAM [Suspect]
     Active Substance: LORAZEPAM
     Indication: Product used for unknown indication
  10. LORAZEPAM [Suspect]
     Active Substance: LORAZEPAM
     Route: 065
  11. LORAZEPAM [Suspect]
     Active Substance: LORAZEPAM
     Route: 065
  12. LORAZEPAM [Suspect]
     Active Substance: LORAZEPAM
  13. LEVOMETHADONE [Interacting]
     Active Substance: LEVOMETHADONE
     Indication: Product used for unknown indication
  14. LEVOMETHADONE [Interacting]
     Active Substance: LEVOMETHADONE
     Route: 065
  15. LEVOMETHADONE [Interacting]
     Active Substance: LEVOMETHADONE
     Route: 065
  16. LEVOMETHADONE [Interacting]
     Active Substance: LEVOMETHADONE
  17. NORDAZEPAM [Interacting]
     Active Substance: NORDAZEPAM
     Indication: Product used for unknown indication
  18. NORDAZEPAM [Interacting]
     Active Substance: NORDAZEPAM
     Route: 065
  19. NORDAZEPAM [Interacting]
     Active Substance: NORDAZEPAM
     Route: 065
  20. NORDAZEPAM [Interacting]
     Active Substance: NORDAZEPAM
  21. OXAZEPAM [Interacting]
     Active Substance: OXAZEPAM
     Indication: Product used for unknown indication
  22. OXAZEPAM [Interacting]
     Active Substance: OXAZEPAM
     Route: 065
  23. OXAZEPAM [Interacting]
     Active Substance: OXAZEPAM
     Route: 065
  24. OXAZEPAM [Interacting]
     Active Substance: OXAZEPAM
  25. TEMAZEPAM [Interacting]
     Active Substance: TEMAZEPAM
     Indication: Product used for unknown indication
  26. TEMAZEPAM [Interacting]
     Active Substance: TEMAZEPAM
     Route: 065
  27. TEMAZEPAM [Interacting]
     Active Substance: TEMAZEPAM
     Route: 065
  28. TEMAZEPAM [Interacting]
     Active Substance: TEMAZEPAM
  29. CLONAZEPAM [Suspect]
     Active Substance: CLONAZEPAM
     Indication: Product used for unknown indication
  30. CLONAZEPAM [Suspect]
     Active Substance: CLONAZEPAM
     Route: 065
  31. CLONAZEPAM [Suspect]
     Active Substance: CLONAZEPAM
     Route: 065
  32. CLONAZEPAM [Suspect]
     Active Substance: CLONAZEPAM
  33. ALCOHOL [Suspect]
     Active Substance: ALCOHOL
     Indication: Product used for unknown indication
  34. ALCOHOL [Suspect]
     Active Substance: ALCOHOL
     Route: 065
  35. ALCOHOL [Suspect]
     Active Substance: ALCOHOL
     Route: 065
  36. ALCOHOL [Suspect]
     Active Substance: ALCOHOL

REACTIONS (8)
  - Drug abuse [Unknown]
  - Psychotic behaviour [Unknown]
  - Aggression [Unknown]
  - Potentiating drug interaction [Unknown]
  - Substance abuse [Unknown]
  - Daydreaming [Unknown]
  - Agitation [Unknown]
  - Cognitive disorder [Unknown]
